FAERS Safety Report 9834669 (Version 1)
Quarter: 2014Q1

REPORT INFORMATION
  Report Type: Spontaneous
  Country: GB (occurrence: GB)
  Receive Date: 20140122
  Receipt Date: 20140122
  Transmission Date: 20141002
  Serious: Yes (Other)
  Sender: FDA-Public Use
  Company Number: PHFR2014GB000788

PATIENT
  Sex: Female

DRUGS (1)
  1. CLOZARIL [Suspect]
     Dosage: 450 UNK
     Route: 048
     Dates: start: 20061212

REACTIONS (2)
  - Cholelithiasis [Unknown]
  - Pain [Unknown]
